FAERS Safety Report 23395370 (Version 1)
Quarter: 2024Q1

REPORT INFORMATION
  Report Type: Spontaneous
  Country: IT (occurrence: IT)
  Receive Date: 20240112
  Receipt Date: 20240112
  Transmission Date: 20240409
  Serious: Yes (Hospitalization, Other)
  Sender: FDA-Public Use
  Company Number: IT-Nexus Pharma-000246

PATIENT
  Age: 50 Year
  Sex: Male

DRUGS (3)
  1. SODIUM NITROPRUSSIDE [Suspect]
     Active Substance: SODIUM NITROPRUSSIDE
     Indication: Pulmonary hypertension
     Dosage: HIGH-DOSE 2.47 MICROGRAM/KG/MIN
  2. EPINEPHRINE [Suspect]
     Active Substance: EPINEPHRINE
     Indication: Pulmonary hypertension
     Dosage: 0.05 MICROGRAM/KG/MIN
  3. SODIUM NITROPRUSSIDE [Suspect]
     Active Substance: SODIUM NITROPRUSSIDE
     Indication: Pulmonary hypertension
     Dosage: 1.1 MICROGRAM/KG/MIN

REACTIONS (2)
  - Arrhythmia [Unknown]
  - Overdose [Unknown]
